FAERS Safety Report 6613631-5 (Version None)
Quarter: 2010Q1

REPORT INFORMATION
  Report Type: 
  Country: None (occurrence: None)
  Receive Date: 20100304
  Receipt Date: 20100223
  Transmission Date: 20100710
  Serious: Yes (Hospitalization)
  Sender: FDA-Public Use
  Company Number: SE-ROCHE-687384

PATIENT
  Age: 52 Year
  Sex: Male

DRUGS (1)
  1. COPEGUS [Suspect]
     Route: 065
     Dates: start: 20091020

REACTIONS (4)
  - CARDIAC ARREST [None]
  - GRAND MAL CONVULSION [None]
  - HAEMATOMA [None]
  - MUSCLE SPASMS [None]
